FAERS Safety Report 8154304-X (Version None)
Quarter: 2012Q1

REPORT INFORMATION
  Report Type: 
  Country: None (occurrence: None)
  Receive Date: 20120217
  Receipt Date: 20120217
  Transmission Date: 20120608
  Serious: Yes (Hospitalization)
  Sender: FDA-Public Use
  Company Number: None

PATIENT
  Sex: Female
  Weight: 11.3 kg

DRUGS (2)
  1. TOPOTECAN [Suspect]
     Dosage: 1.2 MG
  2. CYCLOPHOSPHAMIDE [Suspect]
     Dosage: 300 MG

REACTIONS (14)
  - TUMOUR LYSIS SYNDROME [None]
  - PULMONARY OEDEMA [None]
  - NEUROBLASTOMA [None]
  - HYPOTENSION [None]
  - HAEMODYNAMIC INSTABILITY [None]
  - PORTAL VEIN OCCLUSION [None]
  - PYREXIA [None]
  - PLEURAL EFFUSION [None]
  - ACUTE RESPIRATORY DISTRESS SYNDROME [None]
  - HEPATOMEGALY [None]
  - RENAL FAILURE [None]
  - PERICARDIAL EFFUSION [None]
  - METASTASIS [None]
  - ANAEMIA [None]
